FAERS Safety Report 6404963-4 (Version None)
Quarter: 2009Q4

REPORT INFORMATION
  Report Type: 
  Country: None (occurrence: None)
  Receive Date: 20091019
  Receipt Date: 20091008
  Transmission Date: 20100525
  Serious: Yes (Life-Threatening, Hospitalization)
  Sender: FDA-Public Use
  Company Number: FR-JNJFOC-20091003735

PATIENT
  Age: 49 Year
  Sex: Female

DRUGS (8)
  1. REMICADE [Suspect]
     Dosage: 2ND INFLIXIMAB INFUSION
     Route: 042
     Dates: start: 20080501, end: 20090925
  2. REMICADE [Suspect]
     Route: 042
     Dates: start: 20080501, end: 20090925
  3. REMICADE [Suspect]
     Indication: COLITIS
     Dosage: TOTAL OF 5 INFUSIONS
     Route: 042
     Dates: start: 20080501, end: 20090925
  4. HYDROCORTISONE [Concomitant]
  5. DIFFU K [Concomitant]
  6. PENTASA [Concomitant]
  7. QUADRASA [Concomitant]
     Route: 054
  8. BISPHOSPHONATE [Concomitant]

REACTIONS (5)
  - ANAPHYLACTIC SHOCK [None]
  - INFECTION [None]
  - INFUSION RELATED REACTION [None]
  - PERITONEAL TUBERCULOSIS [None]
  - PULMONARY TUBERCULOSIS [None]
